FAERS Safety Report 10060461 (Version 2)
Quarter: 2014Q2

REPORT INFORMATION
  Report Type: Report from Study
  Country: TR (occurrence: TR)
  Receive Date: 20140404
  Receipt Date: 20140404
  Transmission Date: 20141212
  Serious: Yes (Death, Hospitalization, Other)
  Sender: FDA-Public Use
  Company Number: TR-PFIZER INC-2014091293

PATIENT
  Sex: 0

DRUGS (1)
  1. METHYLPREDNISOLONE ACETATE [Suspect]
     Indication: PEMPHIGOID
     Dosage: 24MG, FOR 2 MONTHS

REACTIONS (2)
  - Renal failure acute [Fatal]
  - Necrotising fasciitis [Unknown]
